FAERS Safety Report 11549316 (Version 1)
Quarter: 2015Q3

REPORT INFORMATION
  Report Type: Spontaneous
  Country: US (occurrence: US)
  Receive Date: 20150924
  Receipt Date: 20150924
  Transmission Date: 20151125
  Serious: No
  Sender: FDA-Public Use
  Company Number: US-INCYTE CORPORATION-2015IN003042

PATIENT
  Sex: Male

DRUGS (14)
  1. DIGOXIN. [Concomitant]
     Active Substance: DIGOXIN
  2. BUMETANIDE. [Concomitant]
     Active Substance: BUMETANIDE
  3. ASPIRIN. [Concomitant]
     Active Substance: ASPIRIN
  4. LOMOTIL [Concomitant]
     Active Substance: ATROPINE SULFATE\DIPHENOXYLATE HYDROCHLORIDE
  5. WARFARIN [Concomitant]
     Active Substance: WARFARIN
  6. JAKAFI [Suspect]
     Active Substance: RUXOLITINIB
     Indication: MYELOFIBROSIS
     Dosage: 15 MG, BID
     Route: 048
     Dates: start: 20150227
  7. JAKAFI [Suspect]
     Active Substance: RUXOLITINIB
     Dosage: 10 MG, BID
     Route: 048
     Dates: start: 20150624
  8. ALLOPURINOL. [Concomitant]
     Active Substance: ALLOPURINOL
  9. GABAPENTIN. [Concomitant]
     Active Substance: GABAPENTIN
  10. LISINOPRIL. [Concomitant]
     Active Substance: LISINOPRIL
  11. JAKAFI [Suspect]
     Active Substance: RUXOLITINIB
     Dosage: 5 MG, BID
     Route: 048
  12. ATENOLOL. [Concomitant]
     Active Substance: ATENOLOL
  13. KLOR-CON [Concomitant]
     Active Substance: POTASSIUM CHLORIDE
  14. LEVOTHYROXINE. [Concomitant]
     Active Substance: LEVOTHYROXINE

REACTIONS (1)
  - Drug intolerance [Unknown]
